FAERS Safety Report 19132170 (Version 1)
Quarter: 2021Q2

REPORT INFORMATION
  Report Type: Spontaneous
  Country: GB (occurrence: GB)
  Receive Date: 20210414
  Receipt Date: 20210414
  Transmission Date: 20210717
  Serious: Yes (Other)
  Sender: FDA-Public Use
  Company Number: GB-ACCORD-222483

PATIENT
  Age: 76 Year
  Sex: Female
  Weight: 80 kg

DRUGS (3)
  1. CARBOCISTEINE/CARBOCISTEINE LYSINE/CARBOCISTEINE SODIUM [Concomitant]
     Active Substance: CARBOCYSTEINE
  2. ESOMEPRAZOLE/ESOMEPRAZOLE MAGNESIUM/ESOMEPRAZOLE SODIUM [Suspect]
     Active Substance: ESOMEPRAZOLE
     Indication: GASTROOESOPHAGEAL REFLUX DISEASE
     Route: 048
     Dates: end: 20210315
  3. LERCANIDIPINE [Concomitant]
     Active Substance: LERCANIDIPINE

REACTIONS (7)
  - Vertigo [Recovered/Resolved with Sequelae]
  - Rash [Recovered/Resolved with Sequelae]
  - Taste disorder [Recovered/Resolved with Sequelae]
  - Dizziness [Recovered/Resolved with Sequelae]
  - Dry mouth [Recovered/Resolved with Sequelae]
  - Peripheral swelling [Recovered/Resolved with Sequelae]
  - Joint swelling [Recovered/Resolved with Sequelae]
